FAERS Safety Report 5916125-5 (Version None)
Quarter: 2008Q4

REPORT INFORMATION
  Report Type: 
  Country: None (occurrence: None)
  Receive Date: 20081013
  Receipt Date: 20081001
  Transmission Date: 20090506
  Serious: Yes (Hospitalization, Other)
  Sender: FDA-Public Use
  Company Number: JP-JNJFOC-20040502107

PATIENT
  Sex: Male
  Weight: 70 kg

DRUGS (20)
  1. LEUSTATIN [Suspect]
     Route: 041
     Dates: start: 20030926, end: 20070205
  2. LEUSTATIN [Suspect]
     Indication: HAIRY CELL LEUKAEMIA
     Route: 041
     Dates: start: 20030926, end: 20070205
  3. LOXONIN [Suspect]
     Indication: PYREXIA
     Route: 048
  4. MINOCYCLINE HCL [Suspect]
     Indication: PYREXIA
     Route: 041
  5. FUNGUARD [Suspect]
     Route: 041
  6. FUNGUARD [Suspect]
     Indication: PYREXIA
     Route: 041
  7. MEROPENEM TRIHYDRATE [Suspect]
     Route: 041
  8. MEROPENEM TRIHYDRATE [Suspect]
     Indication: PYREXIA
     Route: 041
  9. FIRSTCIN [Suspect]
     Indication: PYREXIA
     Route: 041
  10. AMIKACIN SULFATE [Suspect]
     Route: 041
  11. AMIKACIN SULFATE [Suspect]
     Indication: PYREXIA
     Route: 041
  12. MODACIN [Concomitant]
     Indication: PYREXIA
     Route: 041
  13. NEUTROGIN [Concomitant]
     Route: 058
  14. NEUTROGIN [Concomitant]
     Route: 058
  15. NEUTROGIN [Concomitant]
     Route: 058
  16. DIFLUCAN [Concomitant]
     Indication: INFECTION PROPHYLAXIS
     Route: 048
  17. SULFAMETHOXAZOLE AND TRIMETHOPRIM [Concomitant]
     Indication: INFECTION PROPHYLAXIS
     Route: 048
  18. ZOPICLONE [Concomitant]
     Indication: INSOMNIA
     Route: 048
  19. SELBEX [Concomitant]
     Indication: PROPHYLAXIS AGAINST GASTROINTESTINAL ULCER
     Route: 048
  20. GASTER D [Concomitant]
     Indication: GASTRITIS
     Route: 048

REACTIONS (16)
  - ANAEMIA [None]
  - ANOREXIA [None]
  - BLOOD ALKALINE PHOSPHATASE INCREASED [None]
  - C-REACTIVE PROTEIN INCREASED [None]
  - ELECTROLYTE IMBALANCE [None]
  - GASTRITIS [None]
  - HEPATIC STEATOSIS [None]
  - HYPOALBUMINAEMIA [None]
  - HYPOCALCAEMIA [None]
  - HYPOPROTEINAEMIA [None]
  - INSOMNIA [None]
  - LEUKOPENIA [None]
  - PYREXIA [None]
  - THROMBOCYTOPENIA [None]
  - TRANSAMINASES INCREASED [None]
  - WHITE BLOOD CELL DISORDER [None]
